FAERS Safety Report 12582697 (Version 1)
Quarter: 2016Q3

REPORT INFORMATION
  Report Type: Report from Study
  Country: US (occurrence: US)
  Receive Date: 20160722
  Receipt Date: 20160722
  Transmission Date: 20161109
  Serious: Yes (Other)
  Sender: FDA-Public Use
  Company Number: US-JNJFOC-20160711820

PATIENT
  Sex: Female
  Weight: 61.24 kg

DRUGS (1)
  1. STELARA [Suspect]
     Active Substance: USTEKINUMAB
     Indication: BONE DENSITY ABNORMAL
     Route: 058
     Dates: start: 2014, end: 201606

REACTIONS (5)
  - Osteoporosis [Not Recovered/Not Resolved]
  - Vulval neoplasm [Recovered/Resolved]
  - Off label use [Unknown]
  - Spinal fracture [Not Recovered/Not Resolved]
  - Product use issue [Unknown]

NARRATIVE: CASE EVENT DATE: 2014
